FAERS Safety Report 4753141-3 (Version None)
Quarter: 2005Q3

REPORT INFORMATION
  Report Type: 
  Country: None (occurrence: None)
  Receive Date: 20050823
  Receipt Date: 20050809
  Transmission Date: 20060218
  Serious: Yes (Other)
  Sender: FDA-Public Use
  Company Number: SO5-USA-03682-01

PATIENT
  Age: 57 Year
  Sex: Female
  Weight: 159 kg

DRUGS (8)
  1. LEXAPRO [Suspect]
     Indication: DEPRESSION
     Dosage: 10 MG QD, PO
     Route: 048
     Dates: start: 20030701
  2. PROCRIT [Suspect]
     Indication: ANAEMIA
     Dosage: 30000 UNITS QMON
  3. COUMADIN [Concomitant]
  4. IVIG (IMMUNOGLOBULIN) [Concomitant]
  5. TARKA [Concomitant]
  6. COREG [Concomitant]
  7. BOVINA (IRBANDRONATE) [Concomitant]
  8. ORPN (IRON) [Concomitant]

REACTIONS (2)
  - PORPHYRIA [None]
  - RASH [None]
